FAERS Safety Report 5500157-5 (Version None)
Quarter: 2007Q4

REPORT INFORMATION
  Report Type: 
  Country: None (occurrence: None)
  Receive Date: 20071025
  Receipt Date: 20070807
  Transmission Date: 20080405
  Serious: Yes (Other)
  Sender: FDA-Public Use
  Company Number: CIP07001408

PATIENT
  Age: 68 Year
  Sex: Female

DRUGS (4)
  1. DIDRONEL [Suspect]
     Indication: OSTEOPOROSIS
     Dosage: 200 MG DAILY (14 DAYS IN 3 MONTHS), ORAL
     Route: 048
     Dates: start: 19990301, end: 20010901
  2. BONALON /01220301/(ALENDRONIC ACID) 5MG [Suspect]
     Indication: OSTEOPOROSIS
     Dosage: 5 MG DAILY, ORAL
     Route: 048
     Dates: start: 20011001, end: 20020901
  3. FOSAMAC(ALENDRONATE SODIUM) 5MG [Suspect]
     Indication: OSTEOPOROSIS
     Dosage: 5 MG DAILY, ORAL
     Route: 048
     Dates: start: 20021001, end: 20060201
  4. ONE-ALPHA (ALFACALCIDOL) [Concomitant]

REACTIONS (14)
  - BONE DISORDER [None]
  - FACE OEDEMA [None]
  - FISTULA [None]
  - GINGIVAL DISORDER [None]
  - IMPAIRED HEALING [None]
  - OSTEITIS [None]
  - OSTEONECROSIS [None]
  - OSTEOSCLEROSIS [None]
  - PAIN IN JAW [None]
  - SWELLING [None]
  - TOOTH DISORDER [None]
  - TOOTH EXTRACTION [None]
  - TOOTHACHE [None]
  - WOUND DRAINAGE [None]
